FAERS Safety Report 5804319-9 (Version None)
Quarter: 2008Q3

REPORT INFORMATION
  Report Type: 
  Country: None (occurrence: None)
  Receive Date: 20080707
  Receipt Date: 20080707
  Transmission Date: 20090109
  Serious: No
  Sender: FDA-Public Use
  Company Number: None

PATIENT
  Sex: Female
  Weight: 86.1834 kg

DRUGS (13)
  1. NIACIN [Suspect]
     Indication: HYPERLIPIDAEMIA
     Dosage: 500MG QD PO
     Route: 048
     Dates: start: 20080603, end: 20080703
  2. MULTI-VITAMIN [Concomitant]
  3. VITAMIN B COMPLEX CAP [Concomitant]
  4. TOPROL-XL [Concomitant]
  5. TRICOR [Concomitant]
  6. FISH OIL [Concomitant]
  7. FLAX OIL [Concomitant]
  8. ASPIRIN [Concomitant]
  9. MAGNESIUM [Concomitant]
  10. SOY ISOFLAVINS [Concomitant]
  11. COQ10 [Concomitant]
  12. GLUCOSAMINE [Concomitant]
  13. CHONDROITIN [Concomitant]

REACTIONS (6)
  - ASTHENIA [None]
  - DIZZINESS [None]
  - FEELING ABNORMAL [None]
  - FLUSHING [None]
  - SWELLING FACE [None]
  - VERTIGO [None]
